FAERS Safety Report 8055723-2 (Version None)
Quarter: 2012Q1

REPORT INFORMATION
  Report Type: 
  Country: None (occurrence: None)
  Receive Date: 20120119
  Receipt Date: 20120113
  Transmission Date: 20120608
  Serious: No
  Sender: FDA-Public Use
  Company Number: CA-JNJFOC-20080406885

PATIENT
  Sex: Male
  Weight: 109 kg

DRUGS (13)
  1. GOLIMUMAB [Suspect]
     Route: 058
     Dates: start: 20080120
  2. GOLIMUMAB [Suspect]
     Route: 058
     Dates: start: 20070904
  3. CETIRIZINE [Concomitant]
     Indication: SEASONAL ALLERGY
     Route: 048
     Dates: start: 20020101
  4. GOLIMUMAB [Suspect]
     Route: 058
     Dates: start: 20061227
  5. ACETAMINOPHEN [Concomitant]
     Indication: PSORIATIC ARTHROPATHY
     Route: 048
     Dates: start: 20061101
  6. GOLIMUMAB [Suspect]
     Indication: PSORIATIC ARTHROPATHY
     Route: 058
     Dates: start: 20071127
  7. BENADRYL [Concomitant]
     Route: 048
     Dates: start: 20061010
  8. GOLIMUMAB [Suspect]
     Route: 058
     Dates: start: 20071028
  9. GOLIMUMAB [Suspect]
     Route: 058
     Dates: start: 20070930
  10. NOVONAPROX [Concomitant]
     Indication: PSORIATIC ARTHROPATHY
     Route: 048
     Dates: start: 20060801
  11. GOLIMUMAB [Suspect]
     Route: 058
     Dates: start: 20080219, end: 20080324
  12. GOLIMUMAB [Suspect]
     Route: 058
     Dates: start: 20071223
  13. PANTOPRAZOLE SODIUM [Concomitant]
     Indication: DYSPNOEA
     Route: 048
     Dates: start: 20010101

REACTIONS (1)
  - BASAL CELL CARCINOMA [None]
